FAERS Safety Report 20636726 (Version 2)
Quarter: 2022Q2

REPORT INFORMATION
  Report Type: Report from Study
  Country: MY (occurrence: MY)
  Receive Date: 20220325
  Receipt Date: 20220408
  Transmission Date: 20220721
  Serious: Yes (Death, Hospitalization)
  Sender: FDA-Public Use
  Company Number: MY-JNJFOC-20220325525

PATIENT
  Age: 39 Year
  Sex: Male

DRUGS (11)
  1. AMIVANTAMAB [Suspect]
     Active Substance: AMIVANTAMAB
     Indication: Non-small cell lung cancer
     Dosage: ONE THOUSAND FOUR HUNDRED
     Route: 042
     Dates: start: 20220301, end: 20220302
  2. AMIVANTAMAB [Suspect]
     Active Substance: AMIVANTAMAB
     Dosage: 250 ML
     Route: 042
     Dates: start: 20220322, end: 20220322
  3. CARBOPLATIN [Suspect]
     Active Substance: CARBOPLATIN
     Indication: Non-small cell lung cancer
     Dosage: SIX HUNDRED NINETY
     Route: 042
     Dates: start: 20220301, end: 20220301
  4. CARBOPLATIN [Suspect]
     Active Substance: CARBOPLATIN
     Dosage: 500 ML
     Route: 042
     Dates: start: 20220322, end: 20220322
  5. PEMETREXED [Suspect]
     Active Substance: PEMETREXED
     Indication: Non-small cell lung cancer
     Dosage: FIVE HUNDRED
     Route: 042
     Dates: start: 20220301, end: 20220301
  6. PEMETREXED [Suspect]
     Active Substance: PEMETREXED
     Dosage: 915 MG IN 100 ML
     Route: 042
     Dates: start: 20220322, end: 20220322
  7. TRAMADOL [Concomitant]
     Active Substance: TRAMADOL
     Indication: Musculoskeletal chest pain
     Route: 048
     Dates: start: 20220217, end: 20220221
  8. OXYCONTIN [Concomitant]
     Active Substance: OXYCODONE HYDROCHLORIDE
     Indication: Musculoskeletal chest pain
     Route: 048
     Dates: start: 20220221
  9. HYDROCORTISONE [Concomitant]
     Active Substance: HYDROCORTISONE
     Indication: Infusion related reaction
     Route: 042
     Dates: start: 20220301, end: 20220301
  10. CHLORPHENIRAMINE MALEATE [Concomitant]
     Active Substance: CHLORPHENIRAMINE MALEATE
     Indication: Infusion related reaction
     Route: 042
     Dates: start: 20220301, end: 20220301
  11. OXYCODONE HYDROCHLORIDE [Concomitant]
     Active Substance: OXYCODONE HYDROCHLORIDE
     Indication: Musculoskeletal chest pain
     Route: 065

REACTIONS (2)
  - Pulmonary embolism [Recovered/Resolved with Sequelae]
  - COVID-19 pneumonia [Fatal]

NARRATIVE: CASE EVENT DATE: 20220306
